FAERS Safety Report 21304736 (Version 1)
Quarter: 2022Q3

REPORT INFORMATION
  Report Type: Spontaneous
  Country: US (occurrence: None)
  Receive Date: 20220907
  Receipt Date: 20220907
  Transmission Date: 20221026
  Serious: No
  Sender: FDA-Public Use
  Company Number: US-ARIS GLOBAL-202109-1606

PATIENT
  Sex: Female

DRUGS (18)
  1. OXERVATE [Suspect]
     Active Substance: CENEGERMIN-BKBJ
     Indication: Neurotrophic keratopathy
     Route: 047
     Dates: start: 20210823
  2. OXERVATE [Suspect]
     Active Substance: CENEGERMIN-BKBJ
     Indication: Hypoaesthesia eye
  3. ARTIFICIAL TEARS [Concomitant]
     Active Substance: GLYCERIN\HYPROMELLOSES\POLYETHYLENE GLYCOL 400
  4. TYLENOL EXTRA STRENGTH [Concomitant]
     Active Substance: ACETAMINOPHEN
  5. VITAMIN D3 [Concomitant]
     Active Substance: CHOLECALCIFEROL
  6. ASCORBIC ACID [Concomitant]
     Active Substance: ASCORBIC ACID
  7. CENTRUM SILVER WOMEN [Concomitant]
  8. PREDNISOLONE/NEPAFENAC [Concomitant]
  9. METHOTREXATE [Concomitant]
     Active Substance: METHOTREXATE
  10. INFLECTRA [Concomitant]
     Active Substance: INFLIXIMAB-DYYB
     Dosage: VIAL
  11. AMIODARONE HYDROCHLORIDE [Concomitant]
     Active Substance: AMIODARONE HYDROCHLORIDE
  12. TRIAMTERENE/HYDROCHLOROTHIAZID [Concomitant]
  13. ELIQUIS [Concomitant]
     Active Substance: APIXABAN
  14. SIMVASTATIN [Concomitant]
     Active Substance: SIMVASTATIN
  15. CLONAZEPAM [Concomitant]
     Active Substance: CLONAZEPAM
  16. POTASSIUM CHLORIDE [Concomitant]
     Active Substance: POTASSIUM CHLORIDE
     Dosage: PACKET
  17. FUROSEMIDE [Concomitant]
     Active Substance: FUROSEMIDE
  18. LEVOTHYROXINE [Concomitant]
     Active Substance: LEVOTHYROXINE

REACTIONS (2)
  - Eye pain [Unknown]
  - Drug ineffective [Unknown]
